FAERS Safety Report 20509417 (Version 2)
Quarter: 2022Q3

REPORT INFORMATION
  Report Type: Spontaneous
  Country: FR (occurrence: FR)
  Receive Date: 20220223
  Receipt Date: 20220913
  Transmission Date: 20221027
  Serious: Yes (Hospitalization, Other)
  Sender: FDA-Public Use
  Company Number: FR-AFSSAPS-AVNY20211056

PATIENT
  Age: 26 Year
  Sex: Male

DRUGS (5)
  1. TRAMADOL [Suspect]
     Active Substance: TRAMADOL
     Indication: Product used for unknown indication
     Dosage: UNK (HE INCREASES THE DOSES TO 10 TABLETS A DAY, HE HAS ALREADY TAKEN 40 A DAY)
     Route: 065
  2. TRAMADOL [Suspect]
     Active Substance: TRAMADOL
     Dosage: 40 MILLIGRAM, ONCE A DAY
  3. TRAMADOL [Suspect]
     Active Substance: TRAMADOL
     Dosage: 10 DOSAGE FORM, ONCE A DAY
     Route: 048
  4. TRAMADOL [Suspect]
     Active Substance: TRAMADOL
     Dosage: UNK
     Route: 048
     Dates: start: 2018, end: 20220818
  5. SUBUTEX [Suspect]
     Active Substance: BUPRENORPHINE HYDROCHLORIDE
     Indication: Product used for unknown indication
     Dosage: UNK
     Route: 065

REACTIONS (3)
  - Drug dependence [Recovered/Resolved]
  - Gait disturbance [Unknown]
  - Intentional overdose [Unknown]
